FAERS Safety Report 20109608 (Version 1)
Quarter: 2021Q4

REPORT INFORMATION
  Report Type: Spontaneous
  Country: US (occurrence: None)
  Receive Date: 20211124
  Receipt Date: 20211124
  Transmission Date: 20220303
  Serious: Yes (Other)
  Sender: FDA-Public Use
  Company Number: None

PATIENT
  Age: 37 Year
  Sex: Female
  Weight: 87.75 kg

DRUGS (2)
  1. PYLERA [Suspect]
     Active Substance: BISMUTH SUBCITRATE POTASSIUM\METRONIDAZOLE\TETRACYCLINE HYDROCHLORIDE
     Indication: Ulcer
     Dosage: OTHER QUANTITY : 120 CAPSULE(S);?FREQUENCY : 4 TIMES A DAY;?
     Route: 048
     Dates: start: 20211122, end: 20211124
  2. PRILOSEC [Suspect]
     Active Substance: OMEPRAZOLE MAGNESIUM

REACTIONS (9)
  - Burning sensation [None]
  - Somnolence [None]
  - Abdominal distension [None]
  - Cough [None]
  - Chest pain [None]
  - Pruritus [None]
  - Diarrhoea [None]
  - Visual impairment [None]
  - Eye irritation [None]

NARRATIVE: CASE EVENT DATE: 20211122
